FAERS Safety Report 9098897 (Version 1)
Quarter: 2013Q1

REPORT INFORMATION
  Report Type: Spontaneous
  Country: US (occurrence: US)
  Receive Date: 20130213
  Receipt Date: 20130213
  Transmission Date: 20140127
  Serious: Yes (Hospitalization, Other)
  Sender: FDA-Public Use
  Company Number: US-JNJFOC-20130201602

PATIENT
  Sex: Female

DRUGS (4)
  1. REMICADE [Suspect]
     Indication: PSORIASIS
     Route: 042
     Dates: start: 2004, end: 2011
  2. REMICADE [Suspect]
     Indication: PSORIATIC ARTHROPATHY
     Route: 042
     Dates: start: 2004, end: 2011
  3. ENBREL [Suspect]
     Indication: PSORIASIS
     Route: 058
     Dates: start: 2011
  4. ENBREL [Suspect]
     Indication: PSORIATIC ARTHROPATHY
     Route: 058
     Dates: start: 2011

REACTIONS (6)
  - Joint injury [Not Recovered/Not Resolved]
  - Post procedural infection [Recovered/Resolved]
  - Bone disorder [Unknown]
  - Deformity [Not Recovered/Not Resolved]
  - Psoriasis [Not Recovered/Not Resolved]
  - Staphylococcal infection [Not Recovered/Not Resolved]
